FAERS Safety Report 14574224 (Version 5)
Quarter: 2018Q4

REPORT INFORMATION
  Report Type: Report from Study
  Country: US (occurrence: US)
  Receive Date: 20180226
  Receipt Date: 20181214
  Transmission Date: 20190204
  Serious: Yes (Hospitalization)
  Sender: FDA-Public Use
  Company Number: US-ACTELION-A-US2018-166846

PATIENT
  Age: 68 Year
  Sex: Male

DRUGS (5)
  1. LETAIRIS [Concomitant]
     Active Substance: AMBRISENTAN
     Dosage: 10 MG, QD
     Route: 048
     Dates: start: 201203
  2. SILDENAFIL. [Concomitant]
     Active Substance: SILDENAFIL
     Indication: PULMONARY ARTERIAL HYPERTENSION
     Dosage: 20 MG, TID
     Route: 048
     Dates: start: 201203
  3. LASIX [Concomitant]
     Active Substance: FUROSEMIDE
     Dosage: 20 MG, QD
  4. UPTRAVI [Suspect]
     Active Substance: SELEXIPAG
     Dosage: 800 MCG, BID
     Route: 048
  5. UPTRAVI [Suspect]
     Active Substance: SELEXIPAG
     Indication: PULMONARY ARTERIAL HYPERTENSION
     Dosage: 400 MCG, BID
     Route: 048
     Dates: start: 20180117

REACTIONS (12)
  - Pulmonary arterial hypertension [Unknown]
  - Right ventricular failure [Unknown]
  - Urine output decreased [Recovered/Resolved]
  - Oedema peripheral [Unknown]
  - Acute kidney injury [Unknown]
  - Decreased appetite [Unknown]
  - Cardiac failure [Unknown]
  - Respiratory rate increased [Unknown]
  - Dyspnoea [Unknown]
  - Fluid overload [Unknown]
  - Cardiorenal syndrome [Recovered/Resolved]
  - Ascites [Unknown]

NARRATIVE: CASE EVENT DATE: 20180214
